FAERS Safety Report 24445323 (Version 1)
Quarter: 2024Q4

REPORT INFORMATION
  Report Type: Spontaneous
  Country: US (occurrence: None)
  Receive Date: 20241016
  Receipt Date: 20241016
  Transmission Date: 20250115
  Serious: Yes (Hospitalization)
  Sender: Public
  Company Number: None

PATIENT
  Age: 12 Month
  Sex: Male

DRUGS (3)
  1. IXINITY [Suspect]
     Active Substance: COAGULATION FACTOR IX RECOMBINANT HUMAN
     Indication: Factor IX deficiency
     Dosage: NFUSE 315 UNITS (284-346) SLOW IV PUSH DAILY FOR MINOR BLEEDING. INFUSE 525 UNITS (473-577)?SLOW IV
     Route: 042
     Dates: start: 202408
  2. IXINITY [Suspect]
     Active Substance: COAGULATION FACTOR IX RECOMBINANT HUMAN
     Indication: Factor IX deficiency
     Dosage: NFUSE 315 UNITS (284-346) SLOW IV PUSH DAILY FOR MINOR BLEEDING. INFUSE 525 UNITS (473-577)?SLOW IV
     Dates: start: 202408
  3. HEPARIN L/F SYR (3ML/SYR) [Concomitant]

REACTIONS (4)
  - Haemorrhage intracranial [None]
  - Pulmonary contusion [None]
  - Accident at home [None]
  - Head injury [None]

NARRATIVE: CASE EVENT DATE: 20241001
